FAERS Safety Report 5718437-7 (Version None)
Quarter: 2008Q2

REPORT INFORMATION
  Report Type: 
  Country: None (occurrence: None)
  Receive Date: 20080425
  Receipt Date: 20080415
  Transmission Date: 20081010
  Serious: Yes (Hospitalization)
  Sender: FDA-Public Use
  Company Number: US-JNJFOC-20080404244

PATIENT
  Sex: Male
  Weight: 102 kg

DRUGS (6)
  1. EXTRA STRENGTH TYLENOL [Suspect]
  2. EXTRA STRENGTH TYLENOL [Suspect]
     Indication: DRUG USE FOR UNKNOWN INDICATION
  3. KETEK [Suspect]
     Dosage: 5 DAYS
  4. KETEK [Suspect]
     Indication: ACUTE SINUSITIS
     Dosage: 5 DAYS
  5. NASONEX [Concomitant]
  6. BROMFINEX [Concomitant]

REACTIONS (6)
  - HEPATIC STEATOSIS [None]
  - HEPATITIS ACUTE [None]
  - INTENTIONAL OVERDOSE [None]
  - ORAL INTAKE REDUCED [None]
  - PLEURAL EFFUSION [None]
  - VENOUS THROMBOSIS LIMB [None]
